FAERS Safety Report 18113365 (Version 1)
Quarter: 2020Q3

REPORT INFORMATION
  Report Type: Spontaneous
  Country: SK (occurrence: SK)
  Receive Date: 20200805
  Receipt Date: 20200805
  Transmission Date: 20201103
  Serious: Yes (Death, Other)
  Sender: FDA-Public Use
  Company Number: SK-JNJFOC-20200743019

PATIENT

DRUGS (3)
  1. DEXAMETHASONE. [Suspect]
     Active Substance: DEXAMETHASONE
     Indication: PLASMA CELL MYELOMA
     Route: 065
  2. DARZALEX [Suspect]
     Active Substance: DARATUMUMAB
     Indication: PLASMA CELL MYELOMA
     Route: 065
  3. VELCADE [Suspect]
     Active Substance: BORTEZOMIB
     Indication: PLASMA CELL MYELOMA
     Route: 065

REACTIONS (13)
  - Abscess [Unknown]
  - Streptococcal infection [Unknown]
  - Polyneuropathy [Unknown]
  - Infusion related reaction [Unknown]
  - Respiratory tract infection [Unknown]
  - Anaemia [Unknown]
  - Otitis media [Unknown]
  - Pancytopenia [Unknown]
  - Left ventricular failure [Unknown]
  - Thrombocytopenia [Unknown]
  - Infection [Unknown]
  - Plasma cell myeloma [Fatal]
  - Leukopenia [Unknown]
